FAERS Safety Report 6140957-4 (Version None)
Quarter: 2009Q2

REPORT INFORMATION
  Report Type: 
  Country: None (occurrence: None)
  Receive Date: 20090401
  Receipt Date: 20090401
  Transmission Date: 20091009
  Serious: Yes (Hospitalization)
  Sender: FDA-Public Use
  Company Number: None

PATIENT
  Sex: Female
  Weight: 64 kg

DRUGS (2)
  1. CARBOPLATIN [Suspect]
     Dosage: 616 MG
     Dates: end: 20081013
  2. TAXOL [Suspect]
     Dosage: 299 MG
     Dates: end: 20081031

REACTIONS (2)
  - GASTROINTESTINAL PERFORATION [None]
  - POST PROCEDURAL COMPLICATION [None]
